FAERS Safety Report 12927190 (Version 1)
Quarter: 2016Q4

REPORT INFORMATION
  Report Type: Spontaneous
  Country: JP (occurrence: JP)
  Receive Date: 20161109
  Receipt Date: 20161109
  Transmission Date: 20170207
  Serious: Yes (Hospitalization, Other)
  Sender: FDA-Public Use
  Company Number: JP-GILEAD-2016-0242192

PATIENT
  Age: 79 Year
  Sex: Male

DRUGS (1)
  1. HEPSERA [Suspect]
     Active Substance: ADEFOVIR DIPIVOXIL
     Indication: CHRONIC HEPATITIS B
     Route: 048

REACTIONS (13)
  - Tibia fracture [Recovering/Resolving]
  - Fibula fracture [Recovering/Resolving]
  - Rib fracture [Recovering/Resolving]
  - Femur fracture [Recovering/Resolving]
  - Hypokalaemia [Recovering/Resolving]
  - Osteomalacia [Recovering/Resolving]
  - Renal impairment [Not Recovered/Not Resolved]
  - Fanconi syndrome acquired [Recovering/Resolving]
  - Fracture delayed union [Recovering/Resolving]
  - Hypouricaemia [Recovering/Resolving]
  - Hypophosphataemia [Recovering/Resolving]
  - Fall [Recovering/Resolving]
  - Procedural pain [Recovering/Resolving]

NARRATIVE: CASE EVENT DATE: 20141228
